FAERS Safety Report 11853969 (Version 4)
Quarter: 2016Q3

REPORT INFORMATION
  Report Type: Report from Study
  Country: JP (occurrence: JP)
  Receive Date: 20151219
  Receipt Date: 20160721
  Transmission Date: 20161109
  Serious: Yes (Death, Life-Threatening, Other)
  Sender: FDA-Public Use
  Company Number: JP-BRISTOL-MYERS SQUIBB COMPANY-BMS-2015-081372

PATIENT
  Age: 44 Year
  Sex: Male
  Weight: 62.4 kg

DRUGS (8)
  1. IPILIMUMAB [Suspect]
     Active Substance: IPILIMUMAB
     Dosage: 3 MG/KG, UNK
     Route: 065
     Dates: start: 20151109
  2. IPILIMUMAB [Suspect]
     Active Substance: IPILIMUMAB
     Dosage: 3 MG/KG, UNK
     Route: 065
     Dates: start: 20151019
  3. IPILIMUMAB [Suspect]
     Active Substance: IPILIMUMAB
     Dosage: 3 MG/KG, UNK
     Route: 065
     Dates: start: 20151130
  4. RINDERON                           /00008501/ [Concomitant]
     Active Substance: BETAMETHASONE
     Indication: METASTASES TO CENTRAL NERVOUS SYSTEM
     Dosage: 2 MG, QD
     Route: 065
     Dates: start: 20151110, end: 20151118
  5. GLYCEOL                            /00744501/ [Concomitant]
     Active Substance: GLYCERIN
     Indication: METASTASES TO CENTRAL NERVOUS SYSTEM
     Dosage: 400 ML, QD
     Route: 065
     Dates: start: 20151013, end: 20151204
  6. MINOCYCLINE HYDROCHLORIDE. [Concomitant]
     Active Substance: MINOCYCLINE HYDROCHLORIDE
     Indication: WOUND INFECTION
     Dosage: 200 MG, QD
     Route: 065
     Dates: start: 20151001, end: 20151111
  7. LINOLOSAL [Concomitant]
     Indication: METASTASES TO CENTRAL NERVOUS SYSTEM
     Dosage: 4 MG, QD
     Route: 065
     Dates: start: 20151013, end: 20151221
  8. IPILIMUMAB [Suspect]
     Active Substance: IPILIMUMAB
     Indication: MALIGNANT MELANOMA
     Dosage: 3 MG/KG, UNK
     Route: 065
     Dates: start: 20150928

REACTIONS (2)
  - Cerebral haemorrhage [Recovering/Resolving]
  - Malignant neoplasm progression [Fatal]

NARRATIVE: CASE EVENT DATE: 20151111
